FAERS Safety Report 10586290 (Version 1)
Quarter: 2014Q4

REPORT INFORMATION
  Report Type: Spontaneous
  Country: CN (occurrence: CN)
  Receive Date: 20141117
  Receipt Date: 20141117
  Transmission Date: 20150529
  Serious: Yes (Hospitalization)
  Sender: FDA-Public Use
  Company Number: CN-ROCHE-1489761

PATIENT
  Age: 32 Year
  Sex: Male
  Weight: 73 kg

DRUGS (4)
  1. ROCEPHIN [Suspect]
     Active Substance: CEFTRIAXONE SODIUM
     Indication: WOUND INFECTION
     Route: 041
     Dates: start: 20140421, end: 20140424
  2. TEICOPLANIN [Suspect]
     Active Substance: TEICOPLANIN
     Indication: WOUND INFECTION
     Route: 041
     Dates: start: 20140421, end: 20140424
  3. DEZOCINE [Suspect]
     Active Substance: DEZOCINE
     Indication: PAIN
     Route: 041
     Dates: start: 20140420, end: 20140421
  4. NEXIUM [Suspect]
     Active Substance: ESOMEPRAZOLE MAGNESIUM
     Indication: PROPHYLAXIS AGAINST GASTROINTESTINAL ULCER
     Route: 041
     Dates: start: 20140420, end: 20140425

REACTIONS (1)
  - Blood bilirubin increased [Not Recovered/Not Resolved]

NARRATIVE: CASE EVENT DATE: 20140422
